FAERS Safety Report 24322985 (Version 1)
Quarter: 2024Q3

REPORT INFORMATION
  Report Type: Spontaneous
  Country: US (occurrence: None)
  Receive Date: 20240914
  Receipt Date: 20240914
  Transmission Date: 20241016
  Serious: No
  Sender: Public
  Company Number: None

PATIENT
  Age: 50 Year
  Sex: Female
  Weight: 103.4 kg

DRUGS (8)
  1. CYCLOPHOSPHAMIDE [Suspect]
     Active Substance: CYCLOPHOSPHAMIDE
  2. CYTARABINE [Concomitant]
     Active Substance: CYTARABINE
  3. SPRYCEL [Concomitant]
     Active Substance: DASATINIB
  4. DEXAMETHASONE [Concomitant]
     Active Substance: DEXAMETHASONE
  5. DOXORUBICIN HYDROCDHLORIDE [Concomitant]
  6. MESNA [Concomitant]
     Active Substance: MESNA
  7. METHOTREXATE [Concomitant]
     Active Substance: METHOTREXATE
  8. VINCRISTINE SULFATE [Concomitant]
     Active Substance: VINCRISTINE SULFATE

REACTIONS (5)
  - White blood cell count decreased [None]
  - Neutrophil count decreased [None]
  - Anaemia [None]
  - Thrombocytopenia [None]
  - Constipation [None]

NARRATIVE: CASE EVENT DATE: 20240901
